FAERS Safety Report 26132519 (Version 2)
Quarter: 2025Q4

REPORT INFORMATION
  Report Type: Spontaneous
  Country: EU (occurrence: EU)
  Receive Date: 20251208
  Receipt Date: 20251216
  Transmission Date: 20260118
  Serious: Yes (Life-Threatening, Hospitalization, Other)
  Sender: MERZ
  Company Number: EU-ACORDA THERAPEUTICS IRELAND LIMITED-ACO_179960_2025

PATIENT

DRUGS (3)
  1. DALFAMPRIDINE [Suspect]
     Active Substance: DALFAMPRIDINE
     Indication: Multiple sclerosis
     Dosage: 10 MILLIGRAM, BID
     Route: 065
  2. SIPONIMOD [Concomitant]
     Active Substance: SIPONIMOD
     Indication: Product used for unknown indication
     Dosage: UNK
     Route: 065
  3. BACLOFEN [Concomitant]
     Active Substance: BACLOFEN
     Indication: Product used for unknown indication
     Dosage: UNK
     Route: 065

REACTIONS (10)
  - Cholinergic syndrome [Unknown]
  - Pneumonia aspiration [Unknown]
  - Status epilepticus [Unknown]
  - Hypokalaemia [Unknown]
  - Altered state of consciousness [Unknown]
  - Postictal state [Unknown]
  - Trismus [Unknown]
  - Bradycardia [Recovered/Resolved]
  - Tachycardia [Unknown]
  - Overdose [Unknown]
